FAERS Safety Report 13947201 (Version 1)
Quarter: 2017Q3

REPORT INFORMATION
  Report Type: Spontaneous
  Country: GB (occurrence: GB)
  Receive Date: 20170907
  Receipt Date: 20170907
  Transmission Date: 20171128
  Serious: Yes (Disabling, Other)
  Sender: FDA-Public Use
  Company Number: GB-ASTRAZENECA-2017SE91112

PATIENT
  Age: 39 Year
  Sex: Female
  Weight: 109 kg

DRUGS (1)
  1. OMEPRAZOLE. [Suspect]
     Active Substance: OMEPRAZOLE
     Dosage: 20.0MG UNKNOWN
     Route: 048
     Dates: start: 20140905

REACTIONS (4)
  - Muscular weakness [Not Recovered/Not Resolved]
  - Agitation [Not Recovered/Not Resolved]
  - Blood disorder [Not Recovered/Not Resolved]
  - Dry mouth [Not Recovered/Not Resolved]
